FAERS Safety Report 18593493 (Version 1)
Quarter: 2020Q4

REPORT INFORMATION
  Report Type: Spontaneous
  Country: US (occurrence: US)
  Receive Date: 20201209
  Receipt Date: 20201209
  Transmission Date: 20210114
  Serious: No
  Sender: FDA-Public Use
  Company Number: US-AUROBINDO-AUR-APL-2019-071972

PATIENT
  Sex: Female
  Weight: 72.5 kg

DRUGS (1)
  1. RISEDRONATE SODIUM TABLET USP 150 MG [Suspect]
     Active Substance: RISEDRONATE SODIUM
     Indication: BONE DENSITY ABNORMAL
     Dosage: ONLY 01 PILL IN THE MORNING
     Route: 065
     Dates: start: 20190930, end: 20190930

REACTIONS (2)
  - Headache [Recovered/Resolved]
  - Back pain [Recovered/Resolved]

NARRATIVE: CASE EVENT DATE: 20190930
